FAERS Safety Report 21066001 (Version 11)
Quarter: 2025Q4

REPORT INFORMATION
  Report Type: Spontaneous
  Country: US (occurrence: US)
  Receive Date: 20220711
  Receipt Date: 20251211
  Transmission Date: 20260117
  Serious: No
  Sender: PFIZER
  Company Number: US-PFIZER INC-PV202200018443

PATIENT
  Age: 79 Year
  Sex: Female

DRUGS (1)
  1. XELJANZ XR [Suspect]
     Active Substance: TOFACITINIB CITRATE
     Dosage: 11 MG, 1X/DAY

REACTIONS (7)
  - Movement disorder [Unknown]
  - Dysstasia [Unknown]
  - Gait disturbance [Unknown]
  - Condition aggravated [Unknown]
  - Cough [Unknown]
  - Nasopharyngitis [Unknown]
  - COVID-19 [Unknown]
